FAERS Safety Report 23791807 (Version 1)
Quarter: 2024Q2

REPORT INFORMATION
  Report Type: Spontaneous
  Country: US (occurrence: US)
  Receive Date: 20240429
  Receipt Date: 20240429
  Transmission Date: 20240716
  Serious: No
  Sender: FDA-Public Use
  Company Number: US-TEVA-VS-3183913

PATIENT

DRUGS (1)
  1. BUPROPION [Suspect]
     Active Substance: BUPROPION
     Indication: Product used for unknown indication
     Dosage: 3 MONTHS
     Route: 065

REACTIONS (3)
  - Gastrooesophageal reflux disease [Unknown]
  - Chest discomfort [Unknown]
  - Dyspepsia [Unknown]
